FAERS Safety Report 18603365 (Version 4)
Quarter: 2021Q2

REPORT INFORMATION
  Report Type: Report from Study
  Country: None (occurrence: DE)
  Receive Date: 20201210
  Receipt Date: 20210607
  Transmission Date: 20210717
  Serious: Yes (Hospitalization, Other)
  Sender: FDA-Public Use
  Company Number: DE-ABBVIE-20K-062-3679487-00

PATIENT
  Age: 68 Year
  Sex: Female
  Weight: 95 kg

DRUGS (11)
  1. SKYRIZI [Suspect]
     Active Substance: RISANKIZUMAB-RZAA
     Indication: PSORIASIS
     Route: 058
     Dates: start: 20200130
  2. ATORVASTATIN [Concomitant]
     Active Substance: ATORVASTATIN
     Indication: PRODUCT USED FOR UNKNOWN INDICATION
     Route: 048
  3. TILIDINUM AND NALOXON [Concomitant]
     Indication: PRODUCT USED FOR UNKNOWN INDICATION
     Dosage: 50/4 MG
     Route: 048
  4. CANDESARTAN. [Concomitant]
     Active Substance: CANDESARTAN
     Indication: PRODUCT USED FOR UNKNOWN INDICATION
     Route: 048
  5. JARDIANCE [Concomitant]
     Active Substance: EMPAGLIFLOZIN
     Indication: PRODUCT USED FOR UNKNOWN INDICATION
     Route: 048
  6. HUMINSULIN BASAL [Concomitant]
     Active Substance: INSULIN HUMAN
     Indication: PRODUCT USED FOR UNKNOWN INDICATION
     Route: 058
  7. LEVOTHYROXINUM NATRICUM [Concomitant]
     Indication: PRODUCT USED FOR UNKNOWN INDICATION
     Route: 048
  8. SKYRIZI [Suspect]
     Active Substance: RISANKIZUMAB-RZAA
     Indication: PSORIATIC ARTHROPATHY
  9. LIXIANA [Concomitant]
     Active Substance: EDOXABAN TOSYLATE
     Indication: PRODUCT USED FOR UNKNOWN INDICATION
     Route: 048
     Dates: end: 20200926
  10. VERAPAMIL [Concomitant]
     Active Substance: VERAPAMIL HYDROCHLORIDE
     Indication: PRODUCT USED FOR UNKNOWN INDICATION
     Route: 048
  11. NOVORAPID [Concomitant]
     Active Substance: INSULIN ASPART
     Indication: PRODUCT USED FOR UNKNOWN INDICATION
     Dosage: 100 E/ML, 14?20?0 IU
     Route: 051

REACTIONS (15)
  - Insulin-requiring type 2 diabetes mellitus [Unknown]
  - Atrial fibrillation [Unknown]
  - Cervical spinal stenosis [Unknown]
  - Hypertension [Unknown]
  - Sinus node dysfunction [Not Recovered/Not Resolved]
  - Asthenia [Unknown]
  - Wound infection [Recovered/Resolved]
  - Pain [Unknown]
  - Osteoarthritis [Unknown]
  - Intervertebral disc protrusion [Not Recovered/Not Resolved]
  - Intervertebral disc protrusion [Unknown]
  - Carotid arteriosclerosis [Unknown]
  - Diastolic dysfunction [Unknown]
  - Wound secretion [Recovering/Resolving]
  - Spinal laminectomy [Not Recovered/Not Resolved]

NARRATIVE: CASE EVENT DATE: 2020
